FAERS Safety Report 6899869-0 (Version None)
Quarter: 2010Q3

REPORT INFORMATION
  Report Type: 
  Country: None (occurrence: None)
  Receive Date: 20100803
  Receipt Date: 20100726
  Transmission Date: 20110219
  Serious: Yes (Hospitalization)
  Sender: FDA-Public Use
  Company Number: AU-KINGPHARMUSA00001-K201000938

PATIENT
  Age: 12 Year
  Sex: Female
  Weight: 60.2 kg

DRUGS (4)
  1. LEVOXYL [Suspect]
     Indication: HYPOTHYROIDISM
     Dosage: 100 MCG, QOD
  2. LEVOXYL [Suspect]
     Dosage: 25 MCG, QD
  3. LEVOXYL [Suspect]
     Dosage: 75 MCG, QOD
  4. LEVOXYL [Suspect]
     Dosage: 87.5 MCG, QD (ALTERNATED 100 MCG AND 75 MCG)

REACTIONS (24)
  - ACUTE PSYCHOSIS [None]
  - AFFECT LABILITY [None]
  - AGGRESSION [None]
  - AGITATION [None]
  - DISORIENTATION [None]
  - DISTURBANCE IN ATTENTION [None]
  - EDUCATIONAL PROBLEM [None]
  - FLAT AFFECT [None]
  - HALLUCINATION, AUDITORY [None]
  - HALLUCINATION, VISUAL [None]
  - INAPPROPRIATE AFFECT [None]
  - IRRITABILITY [None]
  - MENTAL IMPAIRMENT [None]
  - MIXED RECEPTIVE-EXPRESSIVE LANGUAGE DISORDER [None]
  - MOOD ALTERED [None]
  - MOOD SWINGS [None]
  - NEGATIVISM [None]
  - POOR QUALITY SLEEP [None]
  - POVERTY OF THOUGHT CONTENT [None]
  - PSYCHOMOTOR RETARDATION [None]
  - RESTLESSNESS [None]
  - SOCIAL AVOIDANT BEHAVIOUR [None]
  - SUSPICIOUSNESS [None]
  - VERBAL ABUSE [None]
